FAERS Safety Report 5093376-6 (Version None)
Quarter: 2006Q3

REPORT INFORMATION
  Report Type: 
  Country: None (occurrence: None)
  Receive Date: 20060828
  Receipt Date: 20060816
  Transmission Date: 20061208
  Serious: Yes (Hospitalization)
  Sender: FDA-Public Use
  Company Number: 2006077433

PATIENT
  Age: 75 Year
  Sex: Male
  Weight: 59.4 kg

DRUGS (10)
  1. SUTENT [Suspect]
     Indication: RENAL CELL CARCINOMA STAGE UNSPECIFIED
     Dosage: 25 MG (25 MG, DAILY - INTERVAL: EVERY DAY), ORAL
     Route: 048
     Dates: start: 20051202, end: 20060615
  2. BETAMETHASONE (BETAMETHASONE) [Concomitant]
  3. ZOPICLONE (ZOPICLONE) [Concomitant]
  4. METOCLOPRAMIDE [Concomitant]
  5. BROMHEXINE (BROMHEXINE) [Concomitant]
  6. EFEDRINE (EPHEDRINE HYDROCHLORIDE) [Concomitant]
  7. CALCIUM CARBONATE/MAGNESIUM HYDROXIDE (CALCIUM CARBONATE, MAGNESIUM HY [Concomitant]
  8. PROCHLORPERAZINE MALEATE [Concomitant]
  9. SODIUM PICOSULFATE (SODIUM PICOSULFATE) [Concomitant]
  10. GRANISETRON (GRANISETRON) [Concomitant]

REACTIONS (8)
  - HAEMATEMESIS [None]
  - HYPOTENSION [None]
  - MALIGNANT NEOPLASM PROGRESSION [None]
  - METASTATIC RENAL CELL CARCINOMA [None]
  - OESOPHAGEAL ULCER [None]
  - OESOPHAGITIS [None]
  - SYNCOPE [None]
  - VOMITING [None]
